FAERS Safety Report 12439064 (Version 1)
Quarter: 2016Q2

REPORT INFORMATION
  Report Type: Spontaneous
  Country: US (occurrence: US)
  Receive Date: 20160606
  Receipt Date: 20160606
  Transmission Date: 20160815
  Serious: No
  Sender: FDA-Public Use
  Company Number: US-BRISTOL-MYERS SQUIBB COMPANY-BMS-2016-041798

PATIENT
  Sex: Female
  Weight: 58.9 kg

DRUGS (2)
  1. ELIQUIS [Suspect]
     Active Substance: APIXABAN
     Indication: PRODUCT USED FOR UNKNOWN INDICATION
     Dosage: 5 MG, BID
     Route: 048
  2. ELIQUIS [Suspect]
     Active Substance: APIXABAN
     Dosage: 2.5 MG, UNK
     Route: 048

REACTIONS (7)
  - Off label use [Unknown]
  - Nail disorder [Unknown]
  - Weight decreased [Unknown]
  - Epistaxis [Recovering/Resolving]
  - Alopecia [Unknown]
  - Incorrect product storage [Unknown]
  - Body height decreased [Unknown]
